FAERS Safety Report 5115836-1 (Version None)
Quarter: 2006Q3

REPORT INFORMATION
  Report Type: 
  Country: None (occurrence: None)
  Receive Date: 20060925
  Receipt Date: 20060915
  Transmission Date: 20061208
  Serious: Yes (Death, Other)
  Sender: FDA-Public Use
  Company Number: 2005048449

PATIENT
  Age: 46 Year
  Sex: Female
  Weight: 73.9363 kg

DRUGS (11)
  1. NEURONTIN [Suspect]
     Indication: PROCEDURAL PAIN
     Dosage: 900 MG (300 MG, 3 IN 1 D), ORAL
     Route: 048
     Dates: start: 20040610, end: 20040720
  2. DIFLUCAN [Concomitant]
  3. DIPHENOXYLATE (DIPHENOXYLATE) [Concomitant]
  4. PROPOXYPHENE NAPSYLATE (DEXTROPROPOXYPHENE NAPSILATE) [Concomitant]
  5. LEVOTHYROXINE SODIUM [Concomitant]
  6. GLUCOSAMINE (GLUCOSAMINE) [Concomitant]
  7. CHONDROITIN (CHONDROITIN SULFATE) [Concomitant]
  8. RELAFEN [Concomitant]
  9. TYLENOL W/ CODEINE NO. 3 [Concomitant]
  10. LEVOTHYROID (LEVOTHYROXNE SODIUM) [Concomitant]
  11. VOLTAREN [Concomitant]

REACTIONS (8)
  - AGGRESSION [None]
  - ANXIETY [None]
  - CERVICAL VERTEBRAL FRACTURE [None]
  - COMPLETED SUICIDE [None]
  - HAEMORRHAGE [None]
  - INJURY ASPHYXIATION [None]
  - PETECHIAE [None]
  - SELF INJURIOUS BEHAVIOUR [None]
